FAERS Safety Report 5444595-8 (Version None)
Quarter: 2007Q3

REPORT INFORMATION
  Report Type: 
  Country: None (occurrence: None)
  Receive Date: 20070831
  Receipt Date: 20070823
  Transmission Date: 20080115
  Serious: Yes (Death)
  Sender: FDA-Public Use
  Company Number: 2007-03915

PATIENT
  Age: 82 Year
  Sex: Female

DRUGS (13)
  1. METHYLPREDNISOLONE 4MG TAB [Suspect]
     Indication: TEMPORAL ARTERITIS
     Dosage: SEE IMAGE
     Route: 048
  2. METHYLPREDNISOLONE 4MG TAB [Suspect]
     Indication: TEMPORAL ARTERITIS
     Dosage: SEE IMAGE
     Route: 048
  3. CALCIUM(CALCIUM) [Suspect]
     Indication: OSTEOPOROSIS PROPHYLAXIS
     Dosage: 1000 MG, DAILY, ORAL
     Route: 048
  4. VITAMIN D [Suspect]
     Indication: OSTEOPOROSIS PROPHYLAXIS
     Dosage: 800 IE, DAILY, ORAL
     Route: 048
  5. FENPROCOUMON() [Suspect]
     Indication: DRUG USE FOR UNKNOWN INDICATION
     Dosage: ORAL
     Route: 048
  6. LISINOPRIL [Concomitant]
  7. CELIPROLOL (CELIPROLOL) [Concomitant]
  8. CITALOPRAM HYDROBROMIDE [Concomitant]
  9. ESOMEPRAZOLE (ESOMEPRAZOLE) [Concomitant]
  10. VITAMINS [Concomitant]
  11. MAGNESIUM (MAGNESIUM) [Concomitant]
  12. FUROSEMIDE [Concomitant]
  13. ALENDRONATE SODIUM [Suspect]
     Indication: OSTEOPOROSIS PROPHYLAXIS
     Dosage: 70 MG, 1/WEEK, ORAL
     Route: 048

REACTIONS (4)
  - CALCIPHYLAXIS [None]
  - ECCHYMOSIS [None]
  - GENERAL PHYSICAL HEALTH DETERIORATION [None]
  - SKIN NECROSIS [None]
